FAERS Safety Report 5022525-0 (Version None)
Quarter: 2006Q2

REPORT INFORMATION
  Report Type: 
  Country: None (occurrence: None)
  Receive Date: 20060605
  Receipt Date: 20060522
  Transmission Date: 20061013
  Serious: Yes (Other)
  Sender: FDA-Public Use
  Company Number: 2006061579

PATIENT
  Age: 70 Year
  Sex: Female

DRUGS (5)
  1. FLUCONAZOLE [Suspect]
     Indication: ORAL PAIN
     Dosage: 100 MG (100 MG, 1 IN 1 D), ORAL
     Route: 048
     Dates: start: 20060405, end: 20060419
  2. LEVOTHYROXINE SODIUM [Concomitant]
  3. SOTALOL HCL [Concomitant]
  4. SIMVASTATIN [Concomitant]
  5. LORAZEPAM [Concomitant]

REACTIONS (3)
  - DERMATITIS BULLOUS [None]
  - MUCOUS MEMBRANE DISORDER [None]
  - TOXIC SKIN ERUPTION [None]
